FAERS Safety Report 26182336 (Version 1)
Quarter: 2025Q4

REPORT INFORMATION
  Report Type: Spontaneous
  Country: GB (occurrence: GB)
  Receive Date: 20251221
  Receipt Date: 20251221
  Transmission Date: 20260118
  Serious: Yes (Other)
  Sender: ACCORD
  Company Number: None

PATIENT
  Sex: Male

DRUGS (2)
  1. FINASTERIDE [Suspect]
     Active Substance: FINASTERIDE
     Indication: Alopecia
     Dosage: 1 MG DAILY
     Dates: end: 20251208
  2. MINOXIDIL [Concomitant]
     Active Substance: MINOXIDIL

REACTIONS (1)
  - Mood altered [Not Recovered/Not Resolved]
